FAERS Safety Report 23705000 (Version 1)
Quarter: 2024Q2

REPORT INFORMATION
  Report Type: Spontaneous
  Country: US (occurrence: US)
  Receive Date: 20240404
  Receipt Date: 20240404
  Transmission Date: 20240716
  Serious: No
  Sender: FDA-Public Use
  Company Number: US-TEVA-VS-3173287

PATIENT
  Sex: Female

DRUGS (1)
  1. ALBUTEROL SULFATE [Suspect]
     Active Substance: ALBUTEROL SULFATE
     Indication: Asthma
     Dosage: SHE TAKES 1-2 PUFFS TWICE A DAY (MORNING AND EVENING) AS NEEDED
     Route: 065

REACTIONS (2)
  - Dyspnoea [Unknown]
  - Product cleaning inadequate [Unknown]
